FAERS Safety Report 8610049 (Version 12)
Quarter: 2015Q2

REPORT INFORMATION
  Report Type: Spontaneous
  Country: US (occurrence: US)
  Receive Date: 20120612
  Receipt Date: 20150409
  Transmission Date: 20150821
  Serious: Yes (Hospitalization, Other)
  Sender: FDA-Public Use
  Company Number: US-SANOFI-AVENTIS-2011SA048280

PATIENT
  Age: 62 Year
  Sex: Male
  Weight: 72.5 kg

DRUGS (82)
  1. METHYLPREDNISOLONE. [Concomitant]
     Active Substance: METHYLPREDNISOLONE
  2. VIAGRA [Concomitant]
     Active Substance: SILDENAFIL CITRATE
  3. AMOXICILLIN. [Concomitant]
     Active Substance: AMOXICILLIN
  4. FEXOFENADINE [Concomitant]
     Active Substance: FEXOFENADINE\FEXOFENADINE HYDROCHLORIDE
  5. ENALAPRIL [Concomitant]
     Active Substance: ENALAPRIL
  6. ERTAPENEM [Concomitant]
     Active Substance: ERTAPENEM
  7. GLYCOPYRROLATE. [Concomitant]
     Active Substance: GLYCOPYRROLATE
  8. SUCCINYLCHOLINE CHLORIDE. [Concomitant]
     Active Substance: SUCCINYLCHOLINE CHLORIDE
  9. PLAVIX [Suspect]
     Active Substance: CLOPIDOGREL BISULFATE
     Indication: CEREBROVASCULAR ACCIDENT
     Route: 048
     Dates: start: 20070504, end: 201007
  10. METFORMIN [Concomitant]
     Active Substance: METFORMIN HYDROCHLORIDE
  11. LISINOPRIL. [Concomitant]
     Active Substance: LISINOPRIL
  12. CIPROFLOXACIN. [Concomitant]
     Active Substance: CIPROFLOXACIN
  13. MEPERIDINE [Concomitant]
     Active Substance: MEPERIDINE
  14. METOPROLOL [Concomitant]
     Active Substance: METOPROLOL
  15. BUPIVACAINE [Concomitant]
     Active Substance: BUPIVACAINE
  16. ALL OTHER THERAPEUTIC PRODUCTS [Concomitant]
     Active Substance: UNSPECIFIED INGREDIENT
  17. ATROPINE [Concomitant]
     Active Substance: ATROPINE
  18. ROCURONIUM [Concomitant]
     Active Substance: ROCURONIUM BROMIDE
  19. ROCURONIUM [Concomitant]
     Active Substance: ROCURONIUM BROMIDE
  20. NIFEDIPINE. [Concomitant]
     Active Substance: NIFEDIPINE
  21. NIFEDIPINE. [Concomitant]
     Active Substance: NIFEDIPINE
  22. ECONAZOLE [Concomitant]
     Active Substance: ECONAZOLE
  23. ALL OTHER THERAPEUTIC PRODUCTS [Concomitant]
     Active Substance: UNSPECIFIED INGREDIENT
  24. DIPHENHYDRAMINE [Concomitant]
     Active Substance: DIPHENHYDRAMINE
  25. NAPROXEN. [Concomitant]
     Active Substance: NAPROXEN
  26. CELEBREX [Concomitant]
     Active Substance: CELECOXIB
  27. HYDROCHLOROTHIAZIDE. [Concomitant]
     Active Substance: HYDROCHLOROTHIAZIDE
  28. ZYRTEC [Concomitant]
     Active Substance: CETIRIZINE HYDROCHLORIDE
  29. DIPHENOXYLATE W/ATROPINE SULFATE [Concomitant]
     Active Substance: ATROPINE SULFATE\DIPHENOXYLATE
  30. AZITHROMYCIN [Concomitant]
     Active Substance: AZITHROMYCIN ANHYDROUS
  31. MEGACE [Concomitant]
     Active Substance: MEGESTROL ACETATE
  32. HUMULIN NOS [Concomitant]
     Active Substance: INSULIN HUMAN
  33. CISATRACURIUM [Concomitant]
     Active Substance: CISATRACURIUM
  34. EPHEDRIN [Concomitant]
     Active Substance: EPHEDRINE HYDROCHLORIDE
  35. BISACODYL. [Concomitant]
     Active Substance: BISACODYL
  36. RANITIDINE [Concomitant]
     Active Substance: RANITIDINE\RANITIDINE HYDROCHLORIDE
  37. CEFTRIAXONE. [Concomitant]
     Active Substance: CEFTRIAXONE
  38. BUPIVACAINE [Concomitant]
     Active Substance: BUPIVACAINE
  39. DESFLURANE. [Concomitant]
     Active Substance: DESFLURANE
  40. POTASSIUM CHLORIDE. [Concomitant]
     Active Substance: POTASSIUM CHLORIDE
  41. PROMETHAZINE [Concomitant]
     Active Substance: PROMETHAZINE\PROMETHAZINE HYDROCHLORIDE
  42. PANTHENOL/RETINOL/THIAMINE HYDROCHLORIDE/ASCORBIC ACID/ERGOCALCIFEROL/FOLIC ACID/RIBOFLAVIN/NICOTINA [Concomitant]
  43. ASPIRIN. [Concomitant]
     Active Substance: ASPIRIN
  44. FENTANYL. [Concomitant]
     Active Substance: FENTANYL
  45. MORPHINE [Concomitant]
     Active Substance: MORPHINE
  46. LIDOCAINE. [Concomitant]
     Active Substance: LIDOCAINE
  47. PROPOFOL. [Concomitant]
     Active Substance: PROPOFOL
  48. LABETALOL [Concomitant]
     Active Substance: LABETALOL\LABETALOL HYDROCHLORIDE
  49. CALCIUM GLUCONATE. [Concomitant]
     Active Substance: CALCIUM GLUCONATE
  50. FUROSEMIDE. [Concomitant]
     Active Substance: FUROSEMIDE
  51. LORAZEPAM. [Concomitant]
     Active Substance: LORAZEPAM
  52. GLIPIZIDE. [Concomitant]
     Active Substance: GLIPIZIDE
  53. MAGNESIUM [Concomitant]
     Active Substance: MAGNESIUM
  54. HEPARIN [Concomitant]
     Active Substance: HEPARIN SODIUM
  55. HYDROMORPHONE [Concomitant]
     Active Substance: HYDROMORPHONE
  56. DARVOCET-N 100 [Concomitant]
     Active Substance: ACETAMINOPHEN\PROPOXYPHENE NAPSYLATE
  57. MEROPENEM. [Concomitant]
     Active Substance: MEROPENEM
  58. METOCLOPRAMIDE. [Concomitant]
     Active Substance: METOCLOPRAMIDE
  59. EPHEDRINE [Concomitant]
     Active Substance: EPHEDRINE
  60. LACTATED RINGER^S INJECTION [Concomitant]
  61. ADVIL [Concomitant]
     Active Substance: IBUPROFEN
  62. MOTRIN [Concomitant]
     Active Substance: IBUPROFEN
  63. LEXAPRO [Concomitant]
     Active Substance: ESCITALOPRAM OXALATE
  64. LIPITOR [Concomitant]
     Active Substance: ATORVASTATIN CALCIUM
  65. NEXIUM /UNK/ [Concomitant]
  66. TERBINAFINE [Concomitant]
     Active Substance: TERBINAFINE
  67. ENOXAPARIN [Concomitant]
     Active Substance: ENOXAPARIN
  68. PHENYLEPHRINE [Concomitant]
     Active Substance: PHENYLEPHRINE\PHENYLEPHRINE HYDROCHLORIDE
  69. TADALAFIL [Concomitant]
     Active Substance: TADALAFIL
  70. TAMIFLU /GFR/ [Concomitant]
  71. PANTOPRAZOLE [Concomitant]
     Active Substance: PANTOPRAZOLE SODIUM
  72. ATORVASTATIN [Concomitant]
     Active Substance: ATORVASTATIN
  73. ONDANSETRON [Concomitant]
     Active Substance: ONDANSETRON
  74. HYDROCODONE BITARTRATE/PARACETAMOL [Concomitant]
  75. TAZOBACTAM/PIPERACILLIN [Concomitant]
  76. MIDAZOLAM [Concomitant]
     Active Substance: MIDAZOLAM\MIDAZOLAM HYDROCHLORIDE
  77. FUROSEMIDE. [Concomitant]
     Active Substance: FUROSEMIDE
  78. TAMSULOSIN [Concomitant]
     Active Substance: TAMSULOSIN
  79. NEOSTIGMINE [Concomitant]
     Active Substance: NEOSTIGMINE
  80. GLYCOPYRROLATE. [Concomitant]
     Active Substance: GLYCOPYRROLATE
  81. NORMAL SALINE [Concomitant]
     Active Substance: SODIUM CHLORIDE
  82. EXCEDRIN [Concomitant]
     Active Substance: ACETAMINOPHEN\ASPIRIN\CAFFEINE

REACTIONS (21)
  - Enterocutaneous fistula [Recovered/Resolved with Sequelae]
  - Nephrolithiasis [Unknown]
  - Melanocytic naevus [Unknown]
  - Pleural effusion [Unknown]
  - Post procedural complication [Unknown]
  - Hepatic steatosis [Unknown]
  - Intestinal perforation [Unknown]
  - Back pain [Unknown]
  - Body tinea [Recovering/Resolving]
  - Blood glucose increased [Unknown]
  - Diarrhoea [Unknown]
  - Status epilepticus [Unknown]
  - Abdominal pain upper [Unknown]
  - Weight decreased [Unknown]
  - Gastrointestinal haemorrhage [Recovered/Resolved]
  - General physical health deterioration [Unknown]
  - Abdominal abscess [Recovered/Resolved]
  - Large intestine perforation [Unknown]
  - Adrenal mass [Unknown]
  - Pancreatic pseudocyst [Unknown]
  - Splenic haemorrhage [Unknown]

NARRATIVE: CASE EVENT DATE: 2008
